FAERS Safety Report 18623167 (Version 1)
Quarter: 2020Q4

REPORT INFORMATION
  Report Type: Spontaneous
  Country: US (occurrence: US)
  Receive Date: 20201215
  Receipt Date: 20201215
  Transmission Date: 20210114
  Serious: Yes (Other)
  Sender: FDA-Public Use
  Company Number: None

PATIENT
  Age: 9 Year
  Sex: Male
  Weight: 26.8 kg

DRUGS (1)
  1. PREGABALIN SOLUTION 20MG/ML [Suspect]
     Active Substance: PREGABALIN
     Indication: HYPERAESTHESIA
     Dosage: 50MG (2.5ML) QHS :GTUBE?
     Dates: start: 20201028, end: 20201205

REACTIONS (2)
  - Irritability [None]
  - Anger [None]

NARRATIVE: CASE EVENT DATE: 20201123
